FAERS Safety Report 6817933-9 (Version None)
Quarter: 2010Q3

REPORT INFORMATION
  Report Type: 
  Country: None (occurrence: None)
  Receive Date: 20100706
  Receipt Date: 20100623
  Transmission Date: 20110219
  Serious: Yes (Other)
  Sender: FDA-Public Use
  Company Number: US-BAYER-201026252NA

PATIENT
  Sex: Male

DRUGS (3)
  1. AVELOX [Suspect]
     Indication: PRODUCT USED FOR UNKNOWN INDICATION
     Dosage: PRODUCT CIRCULAR: 23882191T - 81532312
     Route: 048
  2. MEDICATION FOR EPILEPSY [Concomitant]
     Indication: EPILEPSY
  3. CLARINEX [Concomitant]

REACTIONS (3)
  - ANXIETY [None]
  - FEAR [None]
  - HALLUCINATION [None]
